FAERS Safety Report 23287325 (Version 1)
Quarter: 2023Q4

REPORT INFORMATION
  Report Type: Spontaneous
  Country: AT (occurrence: None)
  Receive Date: 20231212
  Receipt Date: 20231212
  Transmission Date: 20240110
  Serious: Yes (Other)
  Sender: FDA-Public Use
  Company Number: 2023A247123

PATIENT
  Age: 60 Year
  Sex: Female

DRUGS (3)
  1. OSIMERTINIB [Suspect]
     Active Substance: OSIMERTINIB
     Indication: Non-small cell lung cancer
     Dosage: HALF THE NORMAL DOSIS TO PREVENT AES
     Route: 048
  2. LORLATINIB [Suspect]
     Active Substance: LORLATINIB
     Indication: Non-small cell lung cancer
     Dosage: HALF THE NORMAL DOSIS TO PREVENT AES
  3. ALECTINIB [Suspect]
     Active Substance: ALECTINIB
     Indication: Non-small cell lung cancer

REACTIONS (4)
  - Malignant neoplasm progression [Recovered/Resolved]
  - Metastases to central nervous system [Unknown]
  - Product use issue [Unknown]
  - Off label use [Unknown]
